FAERS Safety Report 25346940 (Version 1)
Quarter: 2025Q2

REPORT INFORMATION
  Report Type: Spontaneous
  Country: US (occurrence: None)
  Receive Date: 20250521
  Receipt Date: 20250521
  Transmission Date: 20250717
  Serious: No
  Sender: FDA-CTU
  Company Number: None

PATIENT
  Sex: Male
  Weight: 103.5 kg

DRUGS (3)
  1. CETIRIZINE [Suspect]
     Active Substance: CETIRIZINE HYDROCHLORIDE
     Indication: Seasonal allergy
     Dates: start: 20070801
  2. CETIRIZINE [Concomitant]
     Active Substance: CETIRIZINE HYDROCHLORIDE
  3. MONTELUKAST (seasonal, Aug - Dec) [Concomitant]

REACTIONS (5)
  - Urticaria [None]
  - Pruritus [None]
  - Sensitive skin [None]
  - Skin swelling [None]
  - Withdrawal syndrome [None]
